FAERS Safety Report 5194573-1 (Version None)
Quarter: 2006Q4

REPORT INFORMATION
  Report Type: 
  Country: None (occurrence: None)
  Receive Date: 20061228
  Receipt Date: 20061222
  Transmission Date: 20070319
  Serious: Yes (Hospitalization)
  Sender: FDA-Public Use
  Company Number: FR-ALLERGAN-0608846US

PATIENT
  Age: 80 Year
  Sex: Female
  Weight: 51 kg

DRUGS (1)
  1. EXOCINE [Suspect]
     Indication: OCULAR HYPERAEMIA
     Route: 047

REACTIONS (1)
  - STEVENS-JOHNSON SYNDROME [None]
